FAERS Safety Report 15125031 (Version 1)
Quarter: 2018Q3

REPORT INFORMATION
  Report Type: Spontaneous
  Country: US (occurrence: US)
  Receive Date: 20180710
  Receipt Date: 20180710
  Transmission Date: 20181010
  Serious: Yes (Other)
  Sender: FDA-Public Use
  Company Number: US-TEVA-2018-US-920594

PATIENT
  Age: 64 Year
  Sex: Male

DRUGS (1)
  1. ACTIQ [Suspect]
     Active Substance: FENTANYL CITRATE
     Route: 065

REACTIONS (16)
  - Delirium [Unknown]
  - Vomiting [Unknown]
  - Headache [Unknown]
  - Insomnia [Unknown]
  - Drug ineffective [Unknown]
  - Drug dependence [Unknown]
  - Tremor [Unknown]
  - Hallucination [Unknown]
  - Impaired quality of life [Unknown]
  - Agitation [Unknown]
  - Adverse event [Unknown]
  - Product use in unapproved indication [Unknown]
  - Withdrawal syndrome [Unknown]
  - Pain [Unknown]
  - Anxiety [Unknown]
  - Nausea [Unknown]
